FAERS Safety Report 8148163-9 (Version None)
Quarter: 2012Q1

REPORT INFORMATION
  Report Type: 
  Country: None (occurrence: None)
  Receive Date: 20120218
  Receipt Date: 20110503
  Transmission Date: 20120608
  Serious: No
  Sender: FDA-Public Use
  Company Number: US-ALLERGAN-1008114US

PATIENT
  Age: 42 Year
  Sex: Female

DRUGS (6)
  1. UNSPECIFIED EYE DROPS [Concomitant]
  2. UNSPECIFIED MEDICATION FOR BACTERIA [Concomitant]
  3. CLEANSERS [Concomitant]
  4. UNSPECIFIED MEDICATION FOR YEAST [Concomitant]
  5. BOTOX COSMETIC [Suspect]
     Indication: SKIN WRINKLING
     Dosage: 35 UNITS, SINGLE
     Route: 030
     Dates: start: 20100602, end: 20100602
  6. JUVEDERM [Concomitant]
     Indication: SKIN WRINKLING

REACTIONS (9)
  - MASS [None]
  - INJECTION SITE RASH [None]
  - VISUAL ACUITY REDUCED [None]
  - HEADACHE [None]
  - URTICARIA [None]
  - VISION BLURRED [None]
  - EYELID OEDEMA [None]
  - SWELLING FACE [None]
  - DRY EYE [None]
